FAERS Safety Report 6064426-5 (Version None)
Quarter: 2009Q1

REPORT INFORMATION
  Report Type: 
  Country: None (occurrence: None)
  Receive Date: 20090203
  Receipt Date: 20090203
  Transmission Date: 20090719
  Serious: No
  Sender: FDA-Public Use
  Company Number: None

PATIENT
  Age: 73 Year
  Sex: Male
  Weight: 115.6672 kg

DRUGS (1)
  1. FENTANYL-100 [Suspect]
     Indication: ANAESTHESIA
     Dosage: ONCE IV DRIP
     Route: 041
     Dates: start: 20090130, end: 20090130

REACTIONS (1)
  - APHASIA [None]
